FAERS Safety Report 10521900 (Version 2)
Quarter: 2016Q2

REPORT INFORMATION
  Report Type: Spontaneous
  Country: FR (occurrence: FR)
  Receive Date: 20141016
  Receipt Date: 20160407
  Transmission Date: 20160815
  Serious: Yes (Other)
  Sender: FDA-Public Use
  Company Number: FR-ABBVIE-14P-056-1294038-00

PATIENT
  Age: 5 Year
  Sex: Male

DRUGS (5)
  1. ZIDOVUDINE. [Concomitant]
     Active Substance: ZIDOVUDINE
     Indication: HIV INFECTION
  2. KALETRA [Suspect]
     Active Substance: LOPINAVIR\RITONAVIR
     Route: 065
     Dates: start: 20140830
  3. KALETRA [Suspect]
     Active Substance: LOPINAVIR\RITONAVIR
     Indication: HIV INFECTION
     Dosage: 80MG/20MG
     Route: 048
     Dates: start: 20140827
  4. BACTRIM [Concomitant]
     Active Substance: SULFAMETHOXAZOLE\TRIMETHOPRIM
     Indication: PRODUCT USED FOR UNKNOWN INDICATION
     Route: 048
     Dates: start: 20140826
  5. LAMIVUDINE. [Concomitant]
     Active Substance: LAMIVUDINE
     Indication: HIV INFECTION
     Route: 048
     Dates: start: 20140827

REACTIONS (9)
  - Chest pain [Unknown]
  - Hypotension [Recovered/Resolved]
  - Drug prescribing error [Recovered/Resolved]
  - Sepsis [Unknown]
  - Tachycardia [Recovered/Resolved]
  - Lung disorder [Unknown]
  - Procalcitonin increased [Recovering/Resolving]
  - Headache [Unknown]
  - Cryptococcosis [Unknown]

NARRATIVE: CASE EVENT DATE: 20140827
